FAERS Safety Report 15120120 (Version 2)
Quarter: 2018Q3

REPORT INFORMATION
  Report Type: Spontaneous
  Country: US (occurrence: US)
  Receive Date: 20180709
  Receipt Date: 20180719
  Transmission Date: 20181010
  Serious: No
  Sender: FDA-Public Use
  Company Number: US-GLAXOSMITHKLINE-US2018116235

PATIENT
  Sex: Female

DRUGS (1)
  1. EXCEDRIN [Suspect]
     Active Substance: ACETAMINOPHEN\ASPIRIN\CAFFEINE
     Indication: MIGRAINE
     Dosage: 1 UNK, UNK

REACTIONS (8)
  - Tremor [Unknown]
  - Product quality issue [Unknown]
  - Palpitations [Unknown]
  - Tinnitus [Unknown]
  - Abdominal discomfort [Unknown]
  - Abdominal pain upper [Unknown]
  - Insomnia [Unknown]
  - Irritability [Unknown]
